FAERS Safety Report 11540815 (Version 1)
Quarter: 2015Q3

REPORT INFORMATION
  Report Type: Spontaneous
  Country: US (occurrence: US)
  Receive Date: 20150923
  Receipt Date: 20150923
  Transmission Date: 20151125
  Serious: Yes (Death, Other)
  Sender: FDA-Public Use
  Company Number: US-APOTEX-2015AP012920

PATIENT

DRUGS (2)
  1. MYCOPHENOLATE MOFETIL. [Suspect]
     Active Substance: MYCOPHENOLATE MOFETIL
     Indication: PROPHYLAXIS
  2. TACROLIMUS. [Suspect]
     Active Substance: TACROLIMUS

REACTIONS (9)
  - Autoimmune encephalopathy [Unknown]
  - Pneumocystis jirovecii infection [Fatal]
  - Microangiopathic haemolytic anaemia [Fatal]
  - Enterococcal infection [Fatal]
  - Posterior reversible encephalopathy syndrome [Fatal]
  - Cytomegalovirus infection [Fatal]
  - Drug ineffective [Unknown]
  - Graft versus host disease in gastrointestinal tract [Fatal]
  - Seizure [Unknown]
